FAERS Safety Report 6608240-8 (Version None)
Quarter: 2010Q1

REPORT INFORMATION
  Report Type: 
  Country: None (occurrence: None)
  Receive Date: 20100212
  Receipt Date: 20100106
  Transmission Date: 20100710
  Serious: No
  Sender: FDA-Public Use
  Company Number: 1000011133

PATIENT
  Age: 47 Year
  Sex: Female

DRUGS (6)
  1. SAVELLA [Suspect]
     Indication: NEURALGIA
     Dosage: 12.5 MG (12.5 MG, 1 IN 1 D), ORAL; 25 MG (12.5 MG, 2 IN 1 D), ORAL
     Route: 048
     Dates: start: 20100105, end: 20100105
  2. SAVELLA [Suspect]
     Indication: NEURALGIA
     Dosage: 12.5 MG (12.5 MG, 1 IN 1 D), ORAL; 25 MG (12.5 MG, 2 IN 1 D), ORAL
     Route: 048
     Dates: start: 20100106
  3. XANAX [Concomitant]
  4. MORPHINE [Concomitant]
  5. LEVOTHYROXINE [Concomitant]
  6. ALEVE (CAPLET) [Concomitant]

REACTIONS (1)
  - FATIGUE [None]
